FAERS Safety Report 6231316-4 (Version None)
Quarter: 2009Q2

REPORT INFORMATION
  Report Type: 
  Country: None (occurrence: None)
  Receive Date: 20090616
  Receipt Date: 20090604
  Transmission Date: 20091009
  Serious: Yes (Other)
  Sender: FDA-Public Use
  Company Number: US-PFIZER INC-2005131355

PATIENT
  Sex: Female

DRUGS (6)
  1. PROVERA [Suspect]
     Indication: HORMONE REPLACEMENT THERAPY
     Dosage: 5 MG, UNK
     Route: 048
     Dates: start: 19900608, end: 20020815
  2. PREMARIN [Suspect]
     Indication: HORMONE REPLACEMENT THERAPY
     Dosage: 0.625 MG, UNK
     Route: 065
     Dates: start: 19900608, end: 20020916
  3. COMBIPATCH [Suspect]
     Indication: HORMONE REPLACEMENT THERAPY
     Dosage: UNK
     Route: 065
  4. PREFEST [Suspect]
     Indication: HORMONE REPLACEMENT THERAPY
     Dosage: 0.09/1 MG, UNK
     Route: 065
     Dates: start: 20000308, end: 20000322
  5. PROMETRIUM [Suspect]
     Indication: HORMONE REPLACEMENT THERAPY
     Dosage: 100 MG, UNK
     Route: 065
  6. ACETYLSALICYLIC ACID [Concomitant]
     Indication: PAIN
     Dosage: UNK
     Dates: start: 19700101

REACTIONS (1)
  - BREAST CANCER FEMALE [None]
